FAERS Safety Report 5362581-3 (Version None)
Quarter: 2007Q2

REPORT INFORMATION
  Report Type: 
  Country: None (occurrence: None)
  Receive Date: 20070619
  Receipt Date: 20070611
  Transmission Date: 20071010
  Serious: Yes (Other)
  Sender: FDA-Public Use
  Company Number: AU-BOEHRINGER INGELHEIM PHARMACEUTICALS, INC.-2007-DE-03433GD

PATIENT

DRUGS (4)
  1. RANITIDINE [Suspect]
  2. PARACETAMOL [Suspect]
  3. SERTRALINE [Suspect]
  4. CLOZAPINE [Suspect]

REACTIONS (2)
  - DRUG INTERACTION [None]
  - MYOCARDITIS [None]
